FAERS Safety Report 20042984 (Version 2)
Quarter: 2021Q4

REPORT INFORMATION
  Report Type: Report from Study
  Country: US (occurrence: US)
  Receive Date: 20211108
  Receipt Date: 20211119
  Transmission Date: 20220303
  Serious: Yes (Other)
  Sender: FDA-Public Use
  Company Number: US-JAZZ-2021-US-020129

PATIENT
  Age: 57 Year
  Sex: Male

DRUGS (2)
  1. XYREM [Suspect]
     Active Substance: SODIUM OXYBATE
     Indication: Narcolepsy
     Dosage: 2.25 GRAM, BID
     Route: 048
     Dates: start: 202110, end: 202110
  2. XYREM [Suspect]
     Active Substance: SODIUM OXYBATE
     Dosage: UNKNOWN DOSE
     Route: 048
     Dates: start: 20211027

REACTIONS (2)
  - Skin cancer [Recovering/Resolving]
  - Pre-existing condition improved [Unknown]

NARRATIVE: CASE EVENT DATE: 20211026
